FAERS Safety Report 4938874-8 (Version None)
Quarter: 2006Q1

REPORT INFORMATION
  Report Type: 
  Country: None (occurrence: None)
  Receive Date: 20060303
  Receipt Date: 20060222
  Transmission Date: 20060701
  Serious: Yes (Other)
  Sender: FDA-Public Use
  Company Number: 2006026645

PATIENT
  Age: 57 Year
  Sex: Male
  Weight: 108.8633 kg

DRUGS (14)
  1. NORVASC [Suspect]
     Indication: BLOOD PRESSURE
     Dosage: 2.5 MG (2.5 MG, 1 IN 24 HR)
  2. LIPITOR [Suspect]
     Indication: BLOOD CHOLESTEROL
     Dosage: 80 MG (80 MG, 1 IN 24 HR)
  3. ASPIRIN [Concomitant]
  4. METOPROLOL (METOPROLOL) [Concomitant]
  5. ALTACE [Concomitant]
  6. ACTOS [Concomitant]
  7. GLYBURIDE [Concomitant]
  8. RANITIDINE [Concomitant]
  9. DILACOR (DILTIAZEM HYDROCHLORIDE) [Concomitant]
  10. NITROTAB (GLYCERYL TRINITRATE) [Concomitant]
  11. NORTRIPTYLINE HCL [Concomitant]
  12. INSULIN (INSULIN) [Concomitant]
  13. HUMALOG [Concomitant]
  14. OMEGA-3 (OMEGA-3 TIRGLYCERIDES) [Concomitant]

REACTIONS (5)
  - ANGINA UNSTABLE [None]
  - BLOOD PRESSURE INCREASED [None]
  - CORONARY ARTERIAL STENT INSERTION [None]
  - MYOCARDIAL INFARCTION [None]
  - PERIPHERAL VASCULAR DISORDER [None]
